FAERS Safety Report 22959802 (Version 2)
Quarter: 2025Q1

REPORT INFORMATION
  Report Type: Spontaneous
  Country: US (occurrence: US)
  Receive Date: 20230920
  Receipt Date: 20250115
  Transmission Date: 20250409
  Serious: No
  Sender: SANOFI AVENTIS
  Company Number: US-SA-SAC20230915000859

PATIENT
  Sex: Male

DRUGS (9)
  1. DUPIXENT [Suspect]
     Active Substance: DUPILUMAB
     Indication: Dermatitis atopic
     Dosage: 300 MG, QOW
     Route: 058
  2. ELIDEL [Concomitant]
     Active Substance: PIMECROLIMUS
  3. MONTELUKAST [Concomitant]
     Active Substance: MONTELUKAST
  4. ZYRTEC [Concomitant]
     Active Substance: CETIRIZINE HYDROCHLORIDE
  5. ALBUTEROL [Concomitant]
     Active Substance: ALBUTEROL
  6. BRIVIACT [Concomitant]
     Active Substance: BRIVARACETAM
  7. CLOBAZAM [Concomitant]
     Active Substance: CLOBAZAM
  8. CLONAZEPAM [Concomitant]
     Active Substance: CLONAZEPAM
  9. RINVOQ [Concomitant]
     Active Substance: UPADACITINIB
     Indication: Dermatitis atopic

REACTIONS (5)
  - Eye disorder [Unknown]
  - Eye discharge [Unknown]
  - Eyelid margin crusting [Unknown]
  - Injection site pain [Unknown]
  - Product preparation error [Unknown]
